FAERS Safety Report 5186559-8 (Version None)
Quarter: 2006Q4

REPORT INFORMATION
  Report Type: 
  Country: None (occurrence: None)
  Receive Date: 20061213
  Receipt Date: 20061205
  Transmission Date: 20070319
  Serious: Yes (Hospitalization)
  Sender: FDA-Public Use
  Company Number: 2006JP005014

PATIENT
  Sex: Male

DRUGS (5)
  1. VESICARE [Suspect]
     Indication: DRUG USE FOR UNKNOWN INDICATION
     Dosage: ORAL
     Route: 048
     Dates: start: 20061124, end: 20061202
  2. LIPITOR [Concomitant]
  3. EVIPROSTAT (CHIMAPHILA UMBELLATA, MANGANESE CHLORIDE, EQUISETUM ARVENS [Concomitant]
  4. SUNRYTHM (PILSICAINIDE HYDROCHLORIDE) [Concomitant]
  5. NITRIC ACID (NITRIC ACID) [Concomitant]

REACTIONS (1)
  - ACUTE MYOCARDIAL INFARCTION [None]
